FAERS Safety Report 8029272-1 (Version None)
Quarter: 2012Q1

REPORT INFORMATION
  Report Type: 
  Country: None (occurrence: None)
  Receive Date: 20120106
  Receipt Date: 20111227
  Transmission Date: 20120608
  Serious: Yes (Life-Threatening)
  Sender: FDA-Public Use
  Company Number: US-ABBOTT-08P-163-0487545-00

PATIENT
  Sex: Female
  Weight: 69.462 kg

DRUGS (11)
  1. HYDROXYZINE [Concomitant]
     Indication: SEASONAL ALLERGY
     Dates: start: 20030101
  2. NASONEX [Concomitant]
     Indication: SEASONAL ALLERGY
     Dates: start: 20030101
  3. ESSENTIAL VITAMIN [Concomitant]
     Indication: ROUTINE HEALTH MAINTENANCE
     Dates: start: 19960101
  4. PREMARIN [Concomitant]
     Indication: HORMONE REPLACEMENT THERAPY
     Dates: start: 20080123
  5. DICLOFENAC SODIUM [Concomitant]
     Indication: ARTHRITIS
     Dates: start: 20040101
  6. HUMIRA [Suspect]
     Indication: COLITIS ULCERATIVE
     Route: 058
     Dates: start: 20080110, end: 20081113
  7. GLUCOSAMINE/MSM [Concomitant]
     Indication: ARTHRITIS
     Dates: start: 20040101
  8. CARTIA XT [Concomitant]
     Indication: HYPERTENSION
     Dates: start: 20040101
  9. FLOVENT [Concomitant]
     Indication: SEASONAL ALLERGY
     Dates: start: 20030101
  10. ACETAMINOPHEN [Concomitant]
     Indication: ARTHRITIS
     Dates: start: 20040101
  11. ESSENTIAL MINERAL [Concomitant]
     Indication: ROUTINE HEALTH MAINTENANCE
     Dates: start: 19960101

REACTIONS (1)
  - B-CELL LYMPHOMA [None]
